FAERS Safety Report 4629945-4 (Version None)
Quarter: 2005Q2

REPORT INFORMATION
  Report Type: 
  Country: None (occurrence: None)
  Receive Date: 20050408
  Receipt Date: 20050126
  Transmission Date: 20051028
  Serious: Yes (Hospitalization)
  Sender: FDA-Public Use
  Company Number: JP-ROCHE-393911

PATIENT
  Age: 43 Year
  Sex: Female

DRUGS (4)
  1. CELLCEPT [Suspect]
     Route: 048
     Dates: start: 20001227, end: 20010326
  2. CELLCEPT [Suspect]
     Route: 048
     Dates: start: 20010327, end: 20040830
  3. SANDIMMUNE [Suspect]
     Route: 048
     Dates: start: 19930712
  4. PREDONINE [Suspect]
     Route: 048
     Dates: start: 19930712

REACTIONS (3)
  - CYTOMEGALOVIRUS CHORIORETINITIS [None]
  - HAEMATOCRIT DECREASED [None]
  - RED BLOOD CELL COUNT DECREASED [None]
